FAERS Safety Report 5150867-7 (Version None)
Quarter: 2006Q4

REPORT INFORMATION
  Report Type: 
  Country: None (occurrence: None)
  Receive Date: 20061108
  Receipt Date: 20061027
  Transmission Date: 20070319
  Serious: Yes (Other)
  Sender: FDA-Public Use
  Company Number: 2006SP005106

PATIENT
  Age: 50 Year
  Sex: Female

DRUGS (8)
  1. TEMODAL [Suspect]
     Indication: GLIOBLASTOMA
     Dosage: 120 MG; QD; PO; SEE IMAGE
     Route: 048
     Dates: start: 20060301, end: 20060501
  2. TEMODAL [Suspect]
     Indication: GLIOBLASTOMA
     Dosage: 120 MG; QD; PO; SEE IMAGE
     Route: 048
     Dates: start: 20060601, end: 20060601
  3. TEMODAL [Suspect]
     Indication: GLIOBLASTOMA
     Dosage: 120 MG; QD; PO; SEE IMAGE
     Route: 048
     Dates: start: 20060701, end: 20060701
  4. TEMODAL [Suspect]
     Indication: GLIOBLASTOMA
     Dosage: 120 MG; QD; PO; SEE IMAGE
     Route: 048
     Dates: start: 20060801, end: 20060801
  5. TEMODAL [Suspect]
     Indication: GLIOBLASTOMA
     Dosage: 120 MG; QD; PO; SEE IMAGE
     Route: 048
     Dates: start: 20061001, end: 20061001
  6. OMEPRAZOLE [Concomitant]
  7. MEDROL [Concomitant]
  8. NAVOBAN [Concomitant]

REACTIONS (1)
  - DRUG RASH WITH EOSINOPHILIA AND SYSTEMIC SYMPTOMS [None]
